FAERS Safety Report 8607459-4 (Version None)
Quarter: 2012Q3

REPORT INFORMATION
  Report Type: 
  Country: None (occurrence: None)
  Receive Date: 20120809
  Receipt Date: 20120809
  Transmission Date: 20120928
  Serious: Yes (Hospitalization)
  Sender: FDA-Public Use
  Company Number: None

PATIENT
  Age: 90 Year
  Sex: Male
  Weight: 98.2 kg

DRUGS (2)
  1. MIDAZOLAM [Suspect]
     Dosage: 2 MG ONCE IV
     Route: 042
     Dates: start: 20120416, end: 20120416
  2. FENTANYL [Suspect]
     Dosage: 50 MCG ONCE IV
     Route: 042
     Dates: start: 20120416, end: 20120416

REACTIONS (1)
  - RESPIRATORY DEPRESSION [None]
